FAERS Safety Report 10184842 (Version 1)
Quarter: 2014Q2

REPORT INFORMATION
  Report Type: Spontaneous
  Country: US (occurrence: None)
  Receive Date: 20140520
  Receipt Date: 20140520
  Transmission Date: 20141212
  Serious: No
  Sender: FDA-Public Use
  Company Number: None

PATIENT
  Age: 64 Year
  Sex: Female
  Weight: 52.16 kg

DRUGS (16)
  1. SYMBICORT [Suspect]
     Indication: DYSPNOEA EXERTIONAL
     Dosage: 2 PUFFS TWICE DAILY INHALED
     Route: 055
     Dates: start: 20140507, end: 20140510
  2. ALBUTEROL [Concomitant]
  3. PREDNISONE [Concomitant]
  4. WELLBUTRIN SR [Concomitant]
  5. VICODIN [Concomitant]
  6. PERCOCET [Concomitant]
  7. BACLOFEN [Concomitant]
  8. VALIUM [Concomitant]
  9. MAGNESIUM [Concomitant]
  10. ESTER-C [Concomitant]
  11. MULTIVITAMIN [Concomitant]
  12. FISH OIL [Concomitant]
  13. VITAMIN E [Concomitant]
  14. VITAMIN D [Concomitant]
  15. ASPIRIN [Concomitant]
  16. STRESS B VITAMIN? [Concomitant]

REACTIONS (14)
  - Arthritis [None]
  - Pain [None]
  - Dizziness [None]
  - Fatigue [None]
  - Stomatitis [None]
  - Oropharyngeal pain [None]
  - Chills [None]
  - Myalgia [None]
  - Arthralgia [None]
  - Abdominal discomfort [None]
  - Urticaria [None]
  - Pruritus [None]
  - Malaise [None]
  - Pain [None]
